FAERS Safety Report 9481926 (Version 1)
Quarter: 2013Q3

REPORT INFORMATION
  Report Type: Spontaneous
  Country: US (occurrence: None)
  Receive Date: 20130823
  Receipt Date: 20130823
  Transmission Date: 20140515
  Serious: Yes (Other)
  Sender: FDA-Public Use
  Company Number: ACO_37950_2013

PATIENT
  Age: 64 Year
  Sex: Female
  Weight: 54.4 kg

DRUGS (8)
  1. AMPYRA (DALFAMPRIDINE) TABLET, 10MG [Suspect]
     Indication: MULTIPLE SCLEROSIS
     Dates: start: 20110913
  2. AMPYRA (DALFAMPRIDINE) TABLET, 10MG [Suspect]
     Indication: GAIT DISTURBANCE
     Dates: start: 20110913
  3. DMSA (SUCCIMER) [Concomitant]
  4. GAMMA-AMINOBUTYRIC ACID W/NICOTINIC ACID [Concomitant]
  5. AMANTADINE (AMANTADINE HYDROCHLORIDE) [Concomitant]
  6. ALPRAZOLAM [Concomitant]
  7. ROPINIROLE [Concomitant]
  8. NALTREXONE HYDROCHLORIDE [Concomitant]

REACTIONS (2)
  - Breast lump removal [None]
  - Dizziness [None]
